FAERS Safety Report 7338025-9 (Version None)
Quarter: 2011Q1

REPORT INFORMATION
  Report Type: 
  Country: None (occurrence: None)
  Receive Date: 20110308
  Receipt Date: 20110222
  Transmission Date: 20110831
  Serious: Yes (Other)
  Sender: FDA-Public Use
  Company Number: PHHY2011DE18261

PATIENT
  Sex: Female

DRUGS (2)
  1. LEPONEX [Suspect]
     Indication: PSYCHOTIC DISORDER
     Dosage: 250 MG, QD
     Route: 048
  2. LITHIUM [Concomitant]

REACTIONS (2)
  - BIPOLAR I DISORDER [None]
  - DRUG EXPOSURE DURING PREGNANCY [None]
